FAERS Safety Report 25212998 (Version 4)
Quarter: 2025Q2

REPORT INFORMATION
  Report Type: Spontaneous
  Country: JP (occurrence: JP)
  Receive Date: 20250418
  Receipt Date: 20250527
  Transmission Date: 20250716
  Serious: Yes (Death, Life-Threatening, Hospitalization)
  Sender: ALEXION PHARMACEUTICALS
  Company Number: JP-ASTRAZENECA-250036892_013120_P_1

PATIENT
  Age: 70 Year
  Weight: 49 kg

DRUGS (22)
  1. DURVALUMAB [Suspect]
     Active Substance: DURVALUMAB
     Indication: Hepatocellular carcinoma
     Dosage: 1500 MILLIGRAM, Q4W
  2. TREMELIMUMAB [Suspect]
     Active Substance: TREMELIMUMAB
     Indication: Hepatocellular carcinoma
  3. ATEZOLIZUMAB [Suspect]
     Active Substance: ATEZOLIZUMAB
     Indication: Hepatocellular carcinoma
     Route: 065
  4. ATEZOLIZUMAB [Suspect]
     Active Substance: ATEZOLIZUMAB
     Route: 065
  5. ATEZOLIZUMAB [Suspect]
     Active Substance: ATEZOLIZUMAB
     Route: 065
  6. VONOPRAZAN FUMARATE [Concomitant]
     Active Substance: VONOPRAZAN FUMARATE
     Indication: Cirrhosis alcoholic
     Dosage: AFTER BREAKFAST, ONE DOSE PACKAGE
  7. VONOPRAZAN FUMARATE [Concomitant]
     Active Substance: VONOPRAZAN FUMARATE
     Dosage: AFTER BREAKFAST, ONE DOSE PACKAGE
  8. LORAZEPAM [Concomitant]
     Active Substance: LORAZEPAM
     Indication: Alcoholism
     Dosage: AFTER BREAKFAST AND DINNER, ONE DOSE PACKAGE
  9. LORAZEPAM [Concomitant]
     Active Substance: LORAZEPAM
     Dosage: AFTER BREAKFAST AND DINNER, ONE DOSE PACKAGE
  10. ESZOPICLONE [Concomitant]
     Active Substance: ESZOPICLONE
     Indication: Alcoholism
     Dosage: BEFORE BEDTIME, ONE DOSE PACKAGE
  11. ESZOPICLONE [Concomitant]
     Active Substance: ESZOPICLONE
     Dosage: BEFORE BEDTIME, ONE DOSE PACKAGE
  12. ESZOPICLONE [Concomitant]
     Active Substance: ESZOPICLONE
     Dosage: BEFORE BEDTIME, ONE DOSE PACKAGE
  13. ESZOPICLONE [Concomitant]
     Active Substance: ESZOPICLONE
     Dosage: BEFORE BEDTIME, ONE DOSE PACKAGE
  14. AMINO ACIDS, SOURCE UNSPECIFIED [Concomitant]
     Active Substance: AMINO ACIDS, SOURCE UNSPECIFIED
     Indication: Cirrhosis alcoholic
     Dosage: AFTER BREAKFAST AND DINNER
     Route: 065
  15. BELSOMRA [Concomitant]
     Active Substance: SUVOREXANT
     Indication: Insomnia
     Dosage: BEFORE BEDTIME, ONE DOSE PACKAGE
  16. RIFAXIMIN [Concomitant]
     Active Substance: RIFAXIMIN
     Indication: Cirrhosis alcoholic
     Dosage: AFTER BREAKFAST AND DINNER, ONE DOSE PACKAGE
  17. FUROSEMIDE [Concomitant]
     Active Substance: FUROSEMIDE
     Indication: Cirrhosis alcoholic
     Dosage: AFTER BREAKFAST, ONE DOSE PACKAGE
  18. FEXOFENADINE HYDROCHLORIDE [Concomitant]
     Active Substance: FEXOFENADINE HYDROCHLORIDE
     Indication: Pruritus
  19. HUMALOG [Concomitant]
     Active Substance: INSULIN LISPRO
     Indication: Type 2 diabetes mellitus
  20. HUMALOG [Concomitant]
     Active Substance: INSULIN LISPRO
  21. INSULIN GLARGINE [Concomitant]
     Active Substance: INSULIN GLARGINE
     Indication: Type 2 diabetes mellitus
  22. LACTULOSE [Concomitant]
     Active Substance: LACTULOSE
     Indication: Cirrhosis alcoholic

REACTIONS (4)
  - Hepatocellular carcinoma [Fatal]
  - Platelet count decreased [Recovering/Resolving]
  - Autoimmune haemolytic anaemia [Not Recovered/Not Resolved]
  - Acidosis [Not Recovered/Not Resolved]
